FAERS Safety Report 13583577 (Version 1)
Quarter: 2017Q2

REPORT INFORMATION
  Report Type: Spontaneous
  Country: US (occurrence: US)
  Receive Date: 20170526
  Receipt Date: 20170526
  Transmission Date: 20170830
  Serious: No
  Sender: FDA-Public Use
  Company Number: US-TEVA-758229ACC

PATIENT
  Age: 64 Year
  Sex: Male

DRUGS (1)
  1. COPAXONE [Suspect]
     Active Substance: GLATIRAMER ACETATE
     Dosage: UNKNOWN STRENGTH
     Route: 065

REACTIONS (5)
  - Motor dysfunction [Recovered/Resolved]
  - Injection site reaction [Recovered/Resolved]
  - Adverse event [Unknown]
  - Feeling drunk [Recovered/Resolved]
  - Balance disorder [Recovered/Resolved]

NARRATIVE: CASE EVENT DATE: 201603
